FAERS Safety Report 5363633-4 (Version None)
Quarter: 2007Q2

REPORT INFORMATION
  Report Type: 
  Country: None (occurrence: None)
  Receive Date: 20070618
  Receipt Date: 20070618
  Transmission Date: 20071010
  Serious: Yes (Hospitalization)
  Sender: FDA-Public Use
  Company Number: None

PATIENT
  Sex: Female
  Weight: 62.6 kg

DRUGS (16)
  1. CYCLOPHOSPHAMIDE [Suspect]
     Dosage: 1215 MG
  2. DOXIL [Suspect]
     Dosage: 65 MG
  3. NEULASTA [Suspect]
  4. PREDNISONE TAB [Suspect]
  5. RITUXIMAB (MOAB C2B8 ANTI CD20, CHIMERIC) [Suspect]
     Dosage: 610 MG
  6. VINCRISTINE SULFATE [Suspect]
     Dosage: 2 MG
  7. HEPARIN LOCK-FLUSH [Concomitant]
  8. HYDROCHLOROTHIAZIDE [Concomitant]
  9. LEVAQUIN [Concomitant]
  10. POLYETHELENE [Concomitant]
  11. PREDNISONE TAB [Concomitant]
  12. PREGABALIN [Concomitant]
  13. PROTONIX [Concomitant]
  14. REPAGLINIDE [Concomitant]
  15. TRAMADOL HCL [Concomitant]
  16. VERAPAMIL [Concomitant]

REACTIONS (2)
  - FEBRILE NEUTROPENIA [None]
  - STOMATITIS [None]
